FAERS Safety Report 6275259-9 (Version None)
Quarter: 2009Q3

REPORT INFORMATION
  Report Type: 
  Country: None (occurrence: None)
  Receive Date: 20090721
  Receipt Date: 20090708
  Transmission Date: 20100115
  Serious: Yes (Death, Hospitalization)
  Sender: FDA-Public Use
  Company Number: A0713323A

PATIENT
  Age: 57 Year
  Sex: Male
  Weight: 136.4 kg

DRUGS (14)
  1. AVANDIA [Suspect]
     Dosage: 4MG PER DAY
     Route: 048
     Dates: start: 20050401, end: 20060425
  2. DIABETA [Concomitant]
     Dates: start: 19980101, end: 20050101
  3. ATENOLOL [Concomitant]
  4. LISINOPRIL [Concomitant]
  5. HYDROCODONE [Concomitant]
  6. ASPIRIN [Concomitant]
  7. PLAVIX [Concomitant]
  8. INTERFERON [Concomitant]
  9. LASIX [Concomitant]
  10. GLYBURIDE [Concomitant]
  11. INSULIN [Concomitant]
  12. LEVOTHYROXINE SODIUM [Concomitant]
  13. OXYBUTYN [Concomitant]
  14. SIMVASTATIN [Concomitant]

REACTIONS (5)
  - ARTERIOSCLEROSIS CORONARY ARTERY [None]
  - CORONARY ARTERY DISEASE [None]
  - DEPRESSION [None]
  - MALIGNANT NEOPLASM PROGRESSION [None]
  - MYOCARDIAL INFARCTION [None]
